FAERS Safety Report 23752925 (Version 2)
Quarter: 2024Q4

REPORT INFORMATION
  Report Type: Spontaneous
  Country: CN (occurrence: CN)
  Receive Date: 20240417
  Receipt Date: 20241009
  Transmission Date: 20250115
  Serious: Yes (Other)
  Sender: PFIZER
  Company Number: CN-PFIZER INC-PV202400049096

PATIENT
  Age: 82 Year
  Sex: Male

DRUGS (1)
  1. CRIZOTINIB [Suspect]
     Active Substance: CRIZOTINIB
     Dosage: 250 MG, 2X/DAY
     Route: 048

REACTIONS (7)
  - Renal failure [Unknown]
  - Hepatic failure [Unknown]
  - Sleep disorder [Unknown]
  - Venous thrombosis limb [Unknown]
  - Dizziness [Unknown]
  - Conjunctivitis [Unknown]
  - Laryngopharyngitis [Unknown]
